FAERS Safety Report 18210711 (Version 1)
Quarter: 2020Q3

REPORT INFORMATION
  Report Type: Spontaneous
  Country: US (occurrence: US)
  Receive Date: 20200829
  Receipt Date: 20200829
  Transmission Date: 20201103
  Serious: Yes (Other)
  Sender: FDA-Public Use
  Company Number: US-TEVA-2020-US-1819880

PATIENT
  Sex: Male

DRUGS (1)
  1. TRAMADOL. [Suspect]
     Active Substance: TRAMADOL
     Route: 065

REACTIONS (9)
  - Product prescribing error [Unknown]
  - Drug abuse [Unknown]
  - Impaired work ability [Unknown]
  - Overdose [Unknown]
  - Pain [Unknown]
  - Near death experience [Unknown]
  - Mental disorder [Unknown]
  - Confusional state [Unknown]
  - Drug dependence [Unknown]
